FAERS Safety Report 4472588-6 (Version None)
Quarter: 2004Q4

REPORT INFORMATION
  Report Type: 
  Country: None (occurrence: None)
  Receive Date: 20041008
  Receipt Date: 20040922
  Transmission Date: 20050328
  Serious: Yes (Hospitalization)
  Sender: FDA-Public Use
  Company Number: A04200400819

PATIENT
  Sex: Male

DRUGS (1)
  1. PLAVIX [Suspect]
     Indication: TRANSIENT ISCHAEMIC ATTACK
     Dosage: 75 MG OD; ORAL A FEW WEEKS - TIME TO ONSET : 3 WEEKS
     Route: 048
     Dates: start: 20040709, end: 20040101

REACTIONS (4)
  - DRUG INEFFECTIVE [None]
  - HEMIPLEGIA [None]
  - PARAESTHESIA [None]
  - TRANSIENT ISCHAEMIC ATTACK [None]
